FAERS Safety Report 16106973 (Version 4)
Quarter: 2019Q2

REPORT INFORMATION
  Report Type: Spontaneous
  Country: JP (occurrence: JP)
  Receive Date: 20190322
  Receipt Date: 20190416
  Transmission Date: 20190711
  Serious: Yes (Other)
  Sender: FDA-Public Use
  Company Number: JP-GLAXOSMITHKLINE-JP2019050083

PATIENT
  Age: 26 Year
  Sex: Female
  Weight: 48 kg

DRUGS (8)
  1. DICLOFENAC SODIUM. [Suspect]
     Active Substance: DICLOFENAC SODIUM
     Indication: SYMPHYSIOLYSIS
     Dosage: UNK
     Route: 054
  2. METHYLERGOMETRINE MALEATE [Suspect]
     Active Substance: METHYLERGONOVINE MALEATE
     Indication: POSTPARTUM UTERINE SUBINVOLUTION
     Dosage: 0.375 MG, UNK
     Route: 048
  3. DICLOFENAC [Suspect]
     Active Substance: DICLOFENAC
     Indication: SYMPHYSIOLYSIS
     Dosage: UNK
     Route: 054
  4. DICLOFENAC SODIUM. [Suspect]
     Active Substance: DICLOFENAC SODIUM
     Indication: PUBIC PAIN
  5. DICLOFENAC [Suspect]
     Active Substance: DICLOFENAC
     Indication: PUBIC PAIN
  6. DICLOFENAC SODIUM + MISOPROSTOL [Suspect]
     Active Substance: DICLOFENAC SODIUM\MISOPROSTOL
     Indication: PUBIC PAIN
  7. DIAZEPAM. [Concomitant]
     Active Substance: DIAZEPAM
     Indication: AFTERBIRTH PAIN
     Dosage: UNK
     Route: 048
  8. DICLOFENAC SODIUM + MISOPROSTOL [Suspect]
     Active Substance: DICLOFENAC SODIUM\MISOPROSTOL
     Indication: SYMPHYSIOLYSIS
     Dosage: 75 MG, TID
     Route: 048

REACTIONS (6)
  - Blood pressure increased [Unknown]
  - Thunderclap headache [Recovered/Resolved]
  - Cerebral vasoconstriction [Unknown]
  - Cerebral artery stenosis [Unknown]
  - Insomnia [Unknown]
  - Reversible cerebral vasoconstriction syndrome [Unknown]
